FAERS Safety Report 9191509 (Version 2)
Quarter: 2013Q2

REPORT INFORMATION
  Report Type: Spontaneous
  Country: US (occurrence: US)
  Receive Date: 20130326
  Receipt Date: 20130409
  Transmission Date: 20140414
  Serious: Yes (Other)
  Sender: FDA-Public Use
  Company Number: CHPA2013US005240

PATIENT
  Age: 78 Year
  Sex: Female

DRUGS (2)
  1. VOLTAREN GEL [Suspect]
     Indication: OSTEOARTHRITIS
     Dosage: UNK, UNK
     Route: 061
     Dates: end: 20130315
  2. EXELON PATCH [Suspect]
     Dosage: UNK, UNK
     Route: 061
     Dates: end: 20130315

REACTIONS (10)
  - Cataract [Not Recovered/Not Resolved]
  - Gallbladder disorder [Recovered/Resolved]
  - Osteoarthritis [Not Recovered/Not Resolved]
  - Bowel movement irregularity [Not Recovered/Not Resolved]
  - Scar [Not Recovered/Not Resolved]
  - Abdominal distension [Not Recovered/Not Resolved]
  - Abdominal pain upper [Not Recovered/Not Resolved]
  - Diarrhoea [Recovered/Resolved]
  - Wrong technique in drug usage process [Unknown]
  - Underdose [Unknown]
